FAERS Safety Report 20131647 (Version 1)
Quarter: 2021Q4

REPORT INFORMATION
  Report Type: Spontaneous
  Country: US (occurrence: None)
  Receive Date: 20211130
  Receipt Date: 20211130
  Transmission Date: 20220303
  Serious: Yes (Other)
  Sender: FDA-Public Use
  Company Number: None

PATIENT
  Age: 61 Year
  Sex: Male
  Weight: 85.5 kg

DRUGS (2)
  1. LACTULOSE [Suspect]
     Active Substance: LACTULOSE
     Indication: Dyspepsia
     Dosage: OTHER QUANTITY : 16 OUNCE(S);?OTHER FREQUENCY : AS NEEDED;?
     Route: 048
     Dates: start: 20160101, end: 20211126
  2. VITAMINS [Concomitant]
     Active Substance: VITAMINS

REACTIONS (3)
  - Physical product label issue [None]
  - Product taste abnormal [None]
  - Product label issue [None]

NARRATIVE: CASE EVENT DATE: 20211127
